FAERS Safety Report 13334292 (Version 1)
Quarter: 2017Q1

REPORT INFORMATION
  Report Type: Spontaneous
  Country: US (occurrence: US)
  Receive Date: 20170314
  Receipt Date: 20170314
  Transmission Date: 20170428
  Serious: No
  Sender: FDA-Public Use
  Company Number: US-JNJFOC-20170207672

PATIENT
  Sex: Female

DRUGS (1)
  1. AXERT [Suspect]
     Active Substance: ALMOTRIPTAN MALATE
     Indication: MIGRAINE
     Dosage: SINCE 10 YEARS
     Route: 048

REACTIONS (1)
  - Adverse drug reaction [Unknown]
